FAERS Safety Report 6637717-4 (Version None)
Quarter: 2010Q1

REPORT INFORMATION
  Report Type: 
  Country: None (occurrence: None)
  Receive Date: 20100301
  Receipt Date: 20091201
  Transmission Date: 20100710
  Serious: Yes (Hospitalization, Other)
  Sender: FDA-Public Use
  Company Number: RB-26038-2009

PATIENT
  Age: 1 Day

DRUGS (2)
  1. SUBOXONE [Suspect]
     Indication: DRUG DEPENDENCE
     Dosage: 8 MG QID TRANSPLACENTAL
     Route: 064
     Dates: start: 20090111, end: 20090306
  2. SUBUTEX [Suspect]
     Indication: DRUG DEPENDENCE
     Dosage: 8 MG QID TRANSPLACENTAL
     Route: 064
     Dates: start: 20090307, end: 20091001

REACTIONS (3)
  - CONVULSION [None]
  - DRUG WITHDRAWAL SYNDROME NEONATAL [None]
  - TREMOR [None]
